FAERS Safety Report 22292176 (Version 2)
Quarter: 2023Q2

REPORT INFORMATION
  Report Type: Spontaneous
  Country: GB (occurrence: GB)
  Receive Date: 20230508
  Receipt Date: 20230510
  Transmission Date: 20230722
  Serious: Yes (Life-Threatening, Hospitalization, Other)
  Sender: FDA-Public Use
  Company Number: GB-MHRA-MED-202304261616477610-TRMPK

PATIENT
  Age: 12 Year
  Sex: Female

DRUGS (5)
  1. HUMIRA [Suspect]
     Active Substance: ADALIMUMAB
     Indication: Juvenile idiopathic arthritis
     Route: 058
     Dates: start: 20210401
  2. CETRABEN EMOLLIENT BATH ADDITIVE [Concomitant]
     Indication: Product used for unknown indication
  3. ACETAMINOPHEN [Concomitant]
     Active Substance: ACETAMINOPHEN
     Indication: Product used for unknown indication
  4. DERMOL [Concomitant]
     Active Substance: BENZALKONIUM CHLORIDE\CHLORHEXIDINE HYDROCHLORIDE\ISOPROPYL MYRISTATE\PARAFFIN
     Indication: Product used for unknown indication
  5. IBUPROFEN [Concomitant]
     Active Substance: IBUPROFEN
     Indication: Product used for unknown indication

REACTIONS (9)
  - Bovine tuberculosis [Not Recovered/Not Resolved]
  - Spleen tuberculosis [Not Recovered/Not Resolved]
  - Vomiting [Unknown]
  - Pericardial effusion [Unknown]
  - Tuberculosis of central nervous system [Not Recovered/Not Resolved]
  - Junctional ectopic tachycardia [Unknown]
  - Pulmonary tuberculosis [Not Recovered/Not Resolved]
  - Headache [Unknown]
  - Pleural effusion [Unknown]

NARRATIVE: CASE EVENT DATE: 20230310
